FAERS Safety Report 8424913-9 (Version None)
Quarter: 2012Q2

REPORT INFORMATION
  Report Type: 
  Country: None (occurrence: None)
  Receive Date: 20120611
  Receipt Date: 20120605
  Transmission Date: 20120825
  Serious: No
  Sender: FDA-Public Use
  Company Number: US-PFIZER INC-2012118501

PATIENT
  Sex: Female
  Weight: 65.76 kg

DRUGS (2)
  1. PRISTIQ [Suspect]
     Indication: DEPRESSION
     Dosage: 50 MG, 1X/DAY
     Route: 048
     Dates: end: 20120516
  2. PRISTIQ [Suspect]
     Indication: FIBROMYALGIA

REACTIONS (2)
  - MEDICATION RESIDUE [None]
  - FEELING ABNORMAL [None]
